FAERS Safety Report 9958478 (Version 1)
Quarter: 2014Q1

REPORT INFORMATION
  Report Type: Spontaneous
  Country: US (occurrence: US)
  Receive Date: 20140305
  Receipt Date: 20140305
  Transmission Date: 20141002
  Serious: No
  Sender: FDA-Public Use
  Company Number: US-BIOGENIDEC-2014BI019505

PATIENT
  Sex: Female

DRUGS (1)
  1. AVONEX [Suspect]
     Indication: MULTIPLE SCLEROSIS
     Route: 030
     Dates: start: 20050330

REACTIONS (5)
  - Musculoskeletal disorder [Unknown]
  - Abasia [Unknown]
  - Bladder catheterisation [Unknown]
  - Adverse drug reaction [Unknown]
  - Depressed mood [Unknown]
